FAERS Safety Report 9160634 (Version 1)
Quarter: 2013Q1

REPORT INFORMATION
  Report Type: Spontaneous
  Country: US (occurrence: US)
  Receive Date: 20130313
  Receipt Date: 20130313
  Transmission Date: 20140127
  Serious: No
  Sender: FDA-Public Use
  Company Number: US-ABBOTT-12P-163-0939109-00

PATIENT
  Sex: Male
  Weight: 74.91 kg

DRUGS (1)
  1. DEPAKOTE [Suspect]
     Indication: CONVULSION
     Dosage: TITRATED OFF
     Dates: start: 2007, end: 2007

REACTIONS (5)
  - Grip strength decreased [Not Recovered/Not Resolved]
  - Memory impairment [Unknown]
  - Tremor [Not Recovered/Not Resolved]
  - Tremor [Not Recovered/Not Resolved]
  - Tremor [Unknown]
